FAERS Safety Report 4551080-4 (Version None)
Quarter: 2005Q1

REPORT INFORMATION
  Report Type: 
  Country: None (occurrence: None)
  Receive Date: 20050113
  Receipt Date: 20040610
  Transmission Date: 20050727
  Serious: No
  Sender: FDA-Public Use
  Company Number: US-BRISTOL-MYERS SQUIBB COMPANY-12611646

PATIENT
  Age: 55 Year
  Sex: Male
  Weight: 81 kg

DRUGS (6)
  1. IFEX [Suspect]
     Indication: NON-HODGKIN'S LYMPHOMA
     Dosage: 4 GRAMS/METER SQ.
     Route: 042
     Dates: start: 20040609, end: 20040609
  2. ANZEMET [Concomitant]
     Indication: PREMEDICATION
     Route: 042
     Dates: start: 20040609, end: 20040609
  3. DECADRON [Concomitant]
     Indication: PREMEDICATION
     Route: 042
     Dates: start: 20040609, end: 20040609
  4. TERAZOSIN [Concomitant]
  5. ALBUTEROL [Concomitant]
     Route: 055
  6. NASAREL [Concomitant]
     Route: 045

REACTIONS (1)
  - TINNITUS [None]
